FAERS Safety Report 17853836 (Version 3)
Quarter: 2020Q3

REPORT INFORMATION
  Report Type: Report from Study
  Country: None (occurrence: US)
  Receive Date: 20200602
  Receipt Date: 20200811
  Transmission Date: 20201103
  Serious: Yes (Other)
  Sender: FDA-Public Use
  Company Number: US-ABBVIE-20K-163-3426478-00

PATIENT
  Age: 61 Year
  Sex: Female
  Weight: 71.73 kg

DRUGS (6)
  1. HUMIRA [Suspect]
     Active Substance: ADALIMUMAB
     Indication: CROHN^S DISEASE
  2. ADVAIR HFA [Concomitant]
     Active Substance: FLUTICASONE PROPIONATE\SALMETEROL XINAFOATE
     Indication: ASTHMA
  3. PREDNISONE. [Concomitant]
     Active Substance: PREDNISONE
     Indication: CROHN^S DISEASE
  4. VITAMIN D3 [Concomitant]
     Active Substance: CHOLECALCIFEROL
     Indication: PRODUCT USED FOR UNKNOWN INDICATION
  5. HUMIRA [Suspect]
     Active Substance: ADALIMUMAB
     Indication: COLITIS ULCERATIVE
     Route: 058
     Dates: start: 20200401
  6. PREDNISONE. [Concomitant]
     Active Substance: PREDNISONE
     Indication: COLITIS ULCERATIVE

REACTIONS (15)
  - Anxiety [Unknown]
  - Insomnia [Not Recovered/Not Resolved]
  - Allergic cough [Unknown]
  - Nephrolithiasis [Recovering/Resolving]
  - Blister [Unknown]
  - Exposure to SARS-CoV-2 [Unknown]
  - Vitamin D deficiency [Unknown]
  - Pyrexia [Unknown]
  - Post procedural haemorrhage [Not Recovered/Not Resolved]
  - Constipation [Recovered/Resolved]
  - Seasonal allergy [Unknown]
  - Asthma [Unknown]
  - Pruritus [Unknown]
  - Crohn^s disease [Unknown]
  - Colitis ulcerative [Unknown]

NARRATIVE: CASE EVENT DATE: 2020
